FAERS Safety Report 5237588-7 (Version None)
Quarter: 2007Q1

REPORT INFORMATION
  Report Type: 
  Country: None (occurrence: None)
  Receive Date: 20070213
  Receipt Date: 20070201
  Transmission Date: 20070707
  Serious: Yes (Other)
  Sender: FDA-Public Use
  Company Number: US-PFIZER INC-2007009408

PATIENT
  Age: 59 Year
  Sex: Female

DRUGS (5)
  1. GABAPENTIN [Suspect]
  2. PAROXETINE HCL [Suspect]
  3. CHLORPROMAZINE [Concomitant]
  4. LITHIUM CARBONATE [Concomitant]
  5. AMILORIDE HYDROCHLORIDE [Concomitant]

REACTIONS (1)
  - BLOOD CREATININE INCREASED [None]
